FAERS Safety Report 18186708 (Version 1)
Quarter: 2020Q3

REPORT INFORMATION
  Report Type: Spontaneous
  Country: US (occurrence: US)
  Receive Date: 20200824
  Receipt Date: 20200824
  Transmission Date: 20201103
  Serious: Yes (Death, Disabling)
  Sender: FDA-Public Use
  Company Number: None

PATIENT
  Age: 69 Year
  Sex: Female
  Weight: 93 kg

DRUGS (3)
  1. ACTEMRA [Suspect]
     Active Substance: TOCILIZUMAB
     Indication: COVID-19
     Dosage: ?          OTHER FREQUENCY:ONCE;?
     Route: 042
  2. DEXAMETHASONE. [Concomitant]
     Active Substance: DEXAMETHASONE
     Dates: start: 20200804, end: 20200813
  3. REMDESIVIR. [Concomitant]
     Active Substance: REMDESIVIR
     Dates: start: 20200806, end: 20200810

REACTIONS (14)
  - Aspartate aminotransferase increased [None]
  - Alanine aminotransferase increased [None]
  - Haemodialysis [None]
  - Cardiac arrest [None]
  - Platelet count decreased [None]
  - Blood glucose decreased [None]
  - Therapy non-responder [None]
  - Fibrin D dimer increased [None]
  - Inflammatory marker increased [None]
  - Serum ferritin increased [None]
  - Pulmonary embolism [None]
  - Acute kidney injury [None]
  - Blood potassium increased [None]
  - C-reactive protein increased [None]

NARRATIVE: CASE EVENT DATE: 20200820
